FAERS Safety Report 9413057 (Version 1)
Quarter: 2013Q3

REPORT INFORMATION
  Report Type: Spontaneous
  Country: DE (occurrence: DE)
  Receive Date: 20130705
  Receipt Date: 20130705
  Transmission Date: 20140515
  Serious: Yes (Hospitalization, Other)
  Sender: FDA-Public Use
  Company Number: AUR-APL-2009-00340

PATIENT
  Age: 45 Year
  Sex: Female

DRUGS (1)
  1. HYDROCHLOROTHIAZIDE (HYDROCHLOROTHIAZIDE) [Suspect]

REACTIONS (11)
  - Polydipsia [None]
  - Restlessness [None]
  - Vision blurred [None]
  - Hyponatraemia [None]
  - Blood potassium decreased [None]
  - Encephalopathy [None]
  - Rhabdomyolysis [None]
  - Renal impairment [None]
  - Glomerular filtration rate decreased [None]
  - Urine osmolarity decreased [None]
  - Blood osmolarity decreased [None]
